FAERS Safety Report 9540701 (Version 1)
Quarter: 2013Q3

REPORT INFORMATION
  Report Type: Report from Study
  Country: US (occurrence: US)
  Receive Date: 20130920
  Receipt Date: 20130920
  Transmission Date: 20140515
  Serious: Yes (Hospitalization, Other)
  Sender: FDA-Public Use
  Company Number: US-ELI_LILLY_AND_COMPANY-US201309002846

PATIENT
  Sex: Female

DRUGS (6)
  1. DULOXETINE HYDROCHLORIDE [Suspect]
     Indication: FIBROMYALGIA
     Dosage: 30 MG, QD
  2. DULOXETINE HYDROCHLORIDE [Suspect]
     Dosage: 60 MG, QD
  3. DULOXETINE HYDROCHLORIDE [Suspect]
     Dosage: 30 MG, UNKNOWN
  4. DULOXETINE HYDROCHLORIDE [Suspect]
     Dosage: 60 MG, QD
  5. DULOXETINE HYDROCHLORIDE [Suspect]
     Dosage: 30 MG, QD
  6. LISINOPRIL [Concomitant]
     Dosage: 10 MG, UNKNOWN

REACTIONS (9)
  - Heart rate increased [Recovered/Resolved]
  - Loss of consciousness [Unknown]
  - Hypoaesthesia oral [Unknown]
  - Hypoacusis [Unknown]
  - Herpes zoster [Not Recovered/Not Resolved]
  - Bursitis [Unknown]
  - Tinnitus [Unknown]
  - Insomnia [Unknown]
  - Drug withdrawal syndrome [Unknown]
